FAERS Safety Report 23153341 (Version 1)
Quarter: 2023Q4

REPORT INFORMATION
  Report Type: Report from Study
  Country: US (occurrence: US)
  Receive Date: 20231107
  Receipt Date: 20231107
  Transmission Date: 20240110
  Serious: Yes (Other)
  Sender: FDA-Public Use
  Company Number: US-MYLANLABS-2023M1117564

PATIENT
  Age: 13 Year
  Sex: Female

DRUGS (8)
  1. PREDNISONE [Suspect]
     Active Substance: PREDNISONE
     Indication: Nephrotic syndrome
     Dosage: 40 MILLIGRAM, QD
     Route: 065
  2. PREDNISONE [Suspect]
     Active Substance: PREDNISONE
     Indication: Focal segmental glomerulosclerosis
  3. SIMVASTATIN [Suspect]
     Active Substance: SIMVASTATIN
     Indication: Nephrotic syndrome
     Dosage: 20 MILLIGRAM, QD
     Route: 065
  4. SIMVASTATIN [Suspect]
     Active Substance: SIMVASTATIN
     Indication: Focal segmental glomerulosclerosis
  5. VALSARTAN [Suspect]
     Active Substance: VALSARTAN
     Indication: Nephrotic syndrome
     Dosage: 80 MILLIGRAM, QD
     Route: 065
  6. VALSARTAN [Suspect]
     Active Substance: VALSARTAN
     Indication: Focal segmental glomerulosclerosis
  7. PIOGLITAZONE [Suspect]
     Active Substance: PIOGLITAZONE
     Indication: Nephrotic syndrome
     Dosage: 15 MILLIGRAM, QD
     Route: 048
  8. PIOGLITAZONE [Suspect]
     Active Substance: PIOGLITAZONE
     Indication: Focal segmental glomerulosclerosis
     Dosage: 30 MILLIGRAM, QD
     Route: 048

REACTIONS (2)
  - Drug ineffective [Unknown]
  - Off label use [Unknown]
